FAERS Safety Report 23730162 (Version 1)
Quarter: 2024Q2

REPORT INFORMATION
  Report Type: Spontaneous
  Country: PL (occurrence: PL)
  Receive Date: 20240411
  Receipt Date: 20240411
  Transmission Date: 20240716
  Serious: Yes (Life-Threatening)
  Sender: FDA-Public Use
  Company Number: PL-BAUSCH-BL-2024-005655

PATIENT
  Age: 57 Year
  Sex: Male

DRUGS (2)
  1. DEXAMETHASONE [Suspect]
     Active Substance: DEXAMETHASONE
     Indication: Symptomatic treatment
     Route: 042
  2. CEFTRIAXONE [Concomitant]
     Active Substance: CEFTRIAXONE\CEFTRIAXONE SODIUM
     Indication: Antibiotic therapy
     Dosage: STARTED ON DAY 1 OF HOSPITALIZATION
     Route: 042

REACTIONS (1)
  - Therapy non-responder [Unknown]
